FAERS Safety Report 4314058-1 (Version None)
Quarter: 2004Q1

REPORT INFORMATION
  Report Type: 
  Country: None (occurrence: None)
  Receive Date: 20040305
  Receipt Date: 20031216
  Transmission Date: 20041129
  Serious: No
  Sender: FDA-Public Use
  Company Number: 2003UW15118

PATIENT
  Age: 52 Year
  Sex: Female
  Weight: 85.2762 kg

DRUGS (2)
  1. CRESTOR [Suspect]
     Indication: BLOOD CHOLESTEROL INCREASED
     Dosage: 10 MG ONCE PO
     Route: 048
  2. LOTREL [Concomitant]

REACTIONS (2)
  - BLOOD GLUCOSE INCREASED [None]
  - HEART RATE INCREASED [None]
